FAERS Safety Report 8984300 (Version 1)
Quarter: 2012Q4

REPORT INFORMATION
  Report Type: Spontaneous
  Country: DK (occurrence: None)
  Receive Date: 20121212
  Receipt Date: 20121212
  Transmission Date: 20130627
  Serious: Yes (Other)
  Sender: FDA-Public Use
  Company Number: 2011MA013931

PATIENT
  Age: 47 Year
  Sex: Female

DRUGS (7)
  1. METFORMIN HYDROCHLORIDE EXTENDED RELEASE [Suspect]
     Indication: TYPE 2 DIABETES MELLITUS
     Dates: start: 20121115, end: 20121115
  2. GLICLAZIDE [Concomitant]
  3. FEXOFENADINE [Concomitant]
  4. SIMVASTATIN [Concomitant]
  5. PREDNISOLONE [Concomitant]
  6. CETIRIZINE [Concomitant]
  7. VITAMIN B12 [Concomitant]

REACTIONS (1)
  - Angioedema [None]
